FAERS Safety Report 17677051 (Version 2)
Quarter: 2020Q2

REPORT INFORMATION
  Report Type: Spontaneous
  Country: US (occurrence: US)
  Receive Date: 20200416
  Receipt Date: 20200511
  Transmission Date: 20200714
  Serious: Yes (Hospitalization, Other)
  Sender: FDA-Public Use
  Company Number: US-ALLERGAN-2015687US

PATIENT
  Sex: Male

DRUGS (2)
  1. TESTOSTERONE UNK [Suspect]
     Active Substance: TESTOSTERONE
     Indication: TRANSGENDER HORMONAL THERAPY
     Dosage: UNK
     Route: 065
  2. NORETHINDRONE ACETATE. [Concomitant]
     Active Substance: NORETHINDRONE ACETATE
     Indication: THERAPEUTIC OVARIAN SUPPRESSION
     Route: 065

REACTIONS (3)
  - Off label use [Unknown]
  - Borderline ovarian tumour [Recovered/Resolved]
  - Adnexal torsion [Recovered/Resolved]
